FAERS Safety Report 13337323 (Version 6)
Quarter: 2018Q3

REPORT INFORMATION
  Report Type: Report from Study
  Country: US (occurrence: US)
  Receive Date: 20170315
  Receipt Date: 20180829
  Transmission Date: 20181010
  Serious: Yes (Other)
  Sender: FDA-Public Use
  Company Number: PHEH2017US007170

PATIENT
  Sex: Male

DRUGS (1)
  1. COSENTYX [Suspect]
     Active Substance: SECUKINUMAB
     Indication: PSORIASIS
     Dosage: 300 MG, QMO
     Route: 058
     Dates: start: 20150302

REACTIONS (14)
  - Back pain [Unknown]
  - Photophobia [Unknown]
  - Fatigue [Unknown]
  - Corneal abrasion [Unknown]
  - Hyperacusis [Unknown]
  - Muscle spasms [Unknown]
  - Mydriasis [Unknown]
  - Pain [Unknown]
  - Abdominal discomfort [Unknown]
  - Weight decreased [Unknown]
  - Drug effect delayed [Unknown]
  - Iritis [Unknown]
  - Psoriatic arthropathy [Unknown]
  - Migraine [Unknown]
